FAERS Safety Report 6917111-9 (Version None)
Quarter: 2010Q3

REPORT INFORMATION
  Report Type: 
  Country: None (occurrence: None)
  Receive Date: 20100810
  Receipt Date: 20100802
  Transmission Date: 20110219
  Serious: Yes (Other)
  Sender: FDA-Public Use
  Company Number: B0668778A

PATIENT

DRUGS (1)
  1. ALKERAN [Suspect]
     Dosage: 50MG UNKNOWN
     Route: 042

REACTIONS (3)
  - DIARRHOEA [None]
  - NEUTROPENIA [None]
  - STOMATITIS [None]
